FAERS Safety Report 6306890-X (Version None)
Quarter: 2009Q3

REPORT INFORMATION
  Report Type: 
  Country: None (occurrence: None)
  Receive Date: 20090811
  Receipt Date: 20090811
  Transmission Date: 20100115
  Serious: Yes (Other)
  Sender: FDA-Public Use
  Company Number: None

PATIENT
  Sex: Male
  Weight: 74.8435 kg

DRUGS (6)
  1. STRATTERA [Suspect]
     Indication: ATTENTION DEFICIT/HYPERACTIVITY DISORDER
     Dosage: 25MG 1 PO
     Route: 048
     Dates: start: 20090714, end: 20090804
  2. FLUVOXAMINE MALEATE [Concomitant]
  3. AMBIEN [Concomitant]
  4. XANAX [Concomitant]
  5. ZYRTEC [Concomitant]
  6. NALTREXONE HYDROCHLORIDE [Concomitant]

REACTIONS (3)
  - FEELING ABNORMAL [None]
  - SOMNOLENCE [None]
  - THINKING ABNORMAL [None]
